FAERS Safety Report 4930649-9 (Version None)
Quarter: 2006Q1

REPORT INFORMATION
  Report Type: 
  Country: None (occurrence: None)
  Receive Date: 20060227
  Receipt Date: 20060215
  Transmission Date: 20060701
  Serious: Yes (Other)
  Sender: FDA-Public Use
  Company Number: 2006-02-1053

PATIENT
  Age: 83 Year
  Sex: Female

DRUGS (1)
  1. CLARITIN [Suspect]
     Indication: RASH
     Dosage: ORAL
     Route: 048

REACTIONS (2)
  - ABNORMAL BEHAVIOUR [None]
  - HALLUCINATION [None]
